FAERS Safety Report 5814615-7 (Version None)
Quarter: 2008Q3

REPORT INFORMATION
  Report Type: 
  Country: None (occurrence: None)
  Receive Date: 20080718
  Receipt Date: 20070620
  Transmission Date: 20090109
  Serious: No
  Sender: FDA-Public Use
  Company Number: US-KINGPHARMUSA00001-K200700771

PATIENT

DRUGS (2)
  1. LEVOXYL [Suspect]
     Dosage: 50 MCG, QOD
     Dates: start: 20070616, end: 20070620
  2. LEVOXYL [Suspect]
     Dosage: 75 MCG, QOD
     Dates: start: 20070616, end: 20070620

REACTIONS (1)
  - HEADACHE [None]
